FAERS Safety Report 8593535-1 (Version None)
Quarter: 2012Q3

REPORT INFORMATION
  Report Type: 
  Country: None (occurrence: None)
  Receive Date: 20120814
  Receipt Date: 20120808
  Transmission Date: 20120928
  Serious: No
  Sender: FDA-Public Use
  Company Number: US-ASTRAZENECA-2012SE56115

PATIENT
  Sex: Male

DRUGS (2)
  1. NEXIUM [Suspect]
     Indication: PROSTATIC DISORDER
     Route: 048
     Dates: start: 20120802
  2. OXYCODONE [Concomitant]
     Indication: PAIN

REACTIONS (2)
  - OFF LABEL USE [None]
  - DIARRHOEA [None]
